FAERS Safety Report 15312010 (Version 2)
Quarter: 2018Q4

REPORT INFORMATION
  Report Type: Spontaneous
  Country: US (occurrence: US)
  Receive Date: 20180823
  Receipt Date: 20180905
  Transmission Date: 20190204
  Serious: No
  Sender: FDA-Public Use
  Company Number: US-TAIHO ONCOLOGY  INC-EU-2018-01197

PATIENT
  Age: 57 Year
  Sex: Male
  Weight: 90.07 kg

DRUGS (8)
  1. NOVOLOG [Concomitant]
     Active Substance: INSULIN ASPART
     Dosage: NI
  2. COREG [Concomitant]
     Active Substance: CARVEDILOL
     Dosage: NI
  3. VITAMIN D3 [Concomitant]
     Active Substance: CHOLECALCIFEROL
     Dosage: NI
  4. LONSURF [Suspect]
     Active Substance: TIPIRACIL HYDROCHLORIDE\TRIFLURIDINE
     Indication: RECTAL CANCER
     Dosage: CYCLE 7
     Route: 048
     Dates: start: 20180416, end: 20180802
  5. ENALAPRIL [Concomitant]
     Active Substance: ENALAPRIL
     Dosage: NI
  6. ATORVASTATIN [Concomitant]
     Active Substance: ATORVASTATIN
     Dosage: NI
  7. LOW DOSE ASPIRIN [Concomitant]
     Active Substance: ASPIRIN
     Dosage: NI
  8. LANTUS [Concomitant]
     Active Substance: INSULIN GLARGINE
     Dosage: NI

REACTIONS (2)
  - Disease progression [Not Recovered/Not Resolved]
  - Cardiomegaly [Unknown]

NARRATIVE: CASE EVENT DATE: 20180730
